FAERS Safety Report 21196382 (Version 2)
Quarter: 2022Q3

REPORT INFORMATION
  Report Type: Spontaneous
  Country: JP (occurrence: JP)
  Receive Date: 20220810
  Receipt Date: 20220826
  Transmission Date: 20221027
  Serious: No
  Sender: FDA-Public Use
  Company Number: JP-PFIZER INC-PV202200031102

PATIENT

DRUGS (1)
  1. GENOTROPIN [Suspect]
     Active Substance: SOMATROPIN
     Dosage: AMOUNT OF 3 DAYS
     Route: 058

REACTIONS (2)
  - Overdose [Unknown]
  - Device failure [Unknown]

NARRATIVE: CASE EVENT DATE: 20220722
